FAERS Safety Report 15417635 (Version 1)
Quarter: 2018Q3

REPORT INFORMATION
  Report Type: Spontaneous
  Country: BR (occurrence: BR)
  Receive Date: 20180924
  Receipt Date: 20180924
  Transmission Date: 20181010
  Serious: Yes (Other)
  Sender: FDA-Public Use
  Company Number: BR-BAYER-2018-176563

PATIENT
  Age: 25 Year
  Sex: Female

DRUGS (3)
  1. ENOXAPARIN [Interacting]
     Active Substance: ENOXAPARIN
     Indication: ANTIPHOSPHOLIPID SYNDROME
  2. WARFARIN [Interacting]
     Active Substance: WARFARIN
     Indication: ANTIPHOSPHOLIPID SYNDROME
  3. ACETYLSALICYLIC ACID({=100 MG) [Suspect]
     Active Substance: ASPIRIN
     Indication: ANTIPHOSPHOLIPID SYNDROME
     Dosage: DAILY DOSE 100 MG

REACTIONS (6)
  - Retroperitoneal haemorrhage [None]
  - Off label use [None]
  - Product use in unapproved indication [None]
  - Exposure during pregnancy [None]
  - Labelled drug-drug interaction medication error [None]
  - Drug administration error [None]
